FAERS Safety Report 6711300-4 (Version None)
Quarter: 2010Q2

REPORT INFORMATION
  Report Type: 
  Country: None (occurrence: None)
  Receive Date: 20100505
  Receipt Date: 20100426
  Transmission Date: 20101027
  Serious: Yes (Other)
  Sender: FDA-Public Use
  Company Number: US-BRISTOL-MYERS SQUIBB COMPANY-15089550

PATIENT
  Age: 73 Year
  Sex: Female

DRUGS (3)
  1. TRIAMCINOLONE [Suspect]
     Indication: MACULOPATHY
     Dosage: 1 DOSAGES FORM = 20MG/0.1ML.
     Route: 031
  2. CHEMOTHERAPY [Suspect]
     Indication: OVARIAN CANCER METASTATIC
  3. RADIATION THERAPY [Suspect]
     Indication: OVARIAN CANCER METASTATIC

REACTIONS (2)
  - HERPES VIRUS INFECTION [None]
  - RETINITIS VIRAL [None]
